FAERS Safety Report 20134992 (Version 1)
Quarter: 2021Q4

REPORT INFORMATION
  Report Type: Spontaneous
  Country: US (occurrence: US)
  Receive Date: 20211201
  Receipt Date: 20211201
  Transmission Date: 20220303
  Serious: Yes (Life-Threatening, Hospitalization)
  Sender: FDA-Public Use
  Company Number: US-MYLANLABS-2021M1088729

PATIENT
  Age: 65 Year
  Sex: Male

DRUGS (6)
  1. HEPARIN [Suspect]
     Active Substance: HEPARIN SODIUM
     Indication: Anticoagulant therapy
     Dosage: UNK
     Route: 065
  2. BIVALIRUDIN [Suspect]
     Active Substance: BIVALIRUDIN
     Indication: Deep vein thrombosis
     Dosage: 0.02 MILLIGRAM/KILOGRAM, QH, BODY WEIGHT PER HOUR
     Route: 065
  3. VANCOMYCIN [Suspect]
     Active Substance: VANCOMYCIN
     Indication: Staphylococcal infection
     Dosage: UNK
     Route: 065
  4. IMMUNE GLOBULIN NOS [Concomitant]
     Active Substance: IMMUNE GLOBULIN NOS
     Indication: Immune thrombocytopenia
     Dosage: UNK
     Route: 042
  5. DEXAMETHASONE [Concomitant]
     Active Substance: DEXAMETHASONE
     Indication: Immune thrombocytopenia
     Dosage: 40 MILLIGRAM, FOR 4 DAYS
     Route: 042
  6. CEFEPIME [Suspect]
     Active Substance: CEFEPIME HYDROCHLORIDE
     Indication: Staphylococcal infection
     Dosage: UNK
     Route: 065

REACTIONS (10)
  - Heparin-induced thrombocytopenia [Unknown]
  - Shock [Unknown]
  - Lactic acidosis [Unknown]
  - Compartment syndrome [Unknown]
  - Deep vein thrombosis [Unknown]
  - Haematoma [Unknown]
  - Encephalopathy [Unknown]
  - Cerebral venous sinus thrombosis [Unknown]
  - Staphylococcal infection [Unknown]
  - Drug ineffective [Unknown]
